APPROVED DRUG PRODUCT: FAMOTIDINE PRESERVATIVE FREE
Active Ingredient: FAMOTIDINE
Strength: 10MG/ML
Dosage Form/Route: INJECTABLE;INJECTION
Application: A078642 | Product #001 | TE Code: AP
Applicant: MYLAN LABORATORIES LTD
Approved: Jun 25, 2008 | RLD: No | RS: No | Type: RX